FAERS Safety Report 8892770 (Version 1)
Quarter: 2012Q4

REPORT INFORMATION
  Report Type: 
  Country: US (occurrence: US)
  Receive Date: 20121107
  Receipt Date: 20121107
  Transmission Date: 20130627
  Serious: No
  Sender: FDA-Public Use
  Company Number: US-AMGEN-USASP2011054410

PATIENT
  Age: 79 Year
  Sex: Female

DRUGS (6)
  1. ENBREL [Suspect]
     Indication: PRODUCT USED FOR UNKNOWN INDICATION
     Dosage: 25 mg, 2 times/wk
     Route: 058
  2. EVISTA [Concomitant]
     Dosage: 60 mg, UNK
  3. DIOVAN [Concomitant]
     Dosage: 160 mg, UNK
  4. NEXIUM                             /01479302/ [Concomitant]
     Dosage: 20 mg, UNK
  5. VITAMIN D /00107901/ [Concomitant]
     Dosage: 1000 IU, UNK
  6. CALCIUM + VITAMIN D                /01483701/ [Concomitant]

REACTIONS (1)
  - Urinary tract infection [Unknown]
